FAERS Safety Report 14244332 (Version 5)
Quarter: 2018Q4

REPORT INFORMATION
  Report Type: Spontaneous
  Country: US (occurrence: US)
  Receive Date: 20171201
  Receipt Date: 20181015
  Transmission Date: 20190204
  Serious: Yes (Life-Threatening, Hospitalization, Other)
  Sender: FDA-Public Use
  Company Number: US-PFIZER INC-2017512002

PATIENT
  Age: 50 Year
  Sex: Female

DRUGS (1)
  1. HEPARIN SODIUM. [Suspect]
     Active Substance: HEPARIN SODIUM
     Indication: RADIATION NECROSIS
     Dosage: UNK
     Route: 058

REACTIONS (5)
  - Product use in unapproved indication [Unknown]
  - Cerebral venous thrombosis [Recovered/Resolved]
  - Heparin-induced thrombocytopenia [Recovered/Resolved]
  - Cerebral haemorrhage [Recovered/Resolved]
  - Intracranial pressure increased [Recovered/Resolved]
